FAERS Safety Report 12414136 (Version 1)
Quarter: 2016Q2

REPORT INFORMATION
  Report Type: Spontaneous
  Country: US (occurrence: US)
  Receive Date: 20160527
  Receipt Date: 20160527
  Transmission Date: 20160815
  Serious: Yes (Other)
  Sender: FDA-Public Use
  Company Number: US-MDT-ADR-2016-00463

PATIENT
  Age: 37 Year
  Sex: Male

DRUGS (1)
  1. COMPOUNDED BACLOFEN [Suspect]
     Active Substance: BACLOFEN
     Dosage: 649.8 MCG/DAY
     Route: 037

REACTIONS (12)
  - Headache [Unknown]
  - Tremor [Unknown]
  - Joint swelling [Unknown]
  - Rash [Unknown]
  - Dysarthria [Unknown]
  - Dysuria [Unknown]
  - Dysstasia [Unknown]
  - Muscle tightness [Unknown]
  - Hallucination [Unknown]
  - Performance status decreased [Unknown]
  - Underdose [Unknown]
  - Insomnia [Unknown]

NARRATIVE: CASE EVENT DATE: 20160302
